FAERS Safety Report 4678785-9 (Version None)
Quarter: 2005Q2

REPORT INFORMATION
  Report Type: 
  Country: None (occurrence: None)
  Receive Date: 20050531
  Receipt Date: 20050520
  Transmission Date: 20051028
  Serious: Yes (Other)
  Sender: FDA-Public Use
  Company Number: 050520-0000644

PATIENT
  Age: 63 Year
  Sex: Female
  Weight: 61.2356 kg

DRUGS (4)
  1. DESOXYN [Suspect]
     Indication: ATTENTION DEFICIT/HYPERACTIVITY DISORDER
     Dosage: 20 MG;QD;PO
     Route: 048
     Dates: start: 19980101, end: 20050225
  2. DESOXYN [Suspect]
     Indication: PAIN MANAGEMENT
     Dosage: 20 MG;QD;PO
     Route: 048
     Dates: start: 19980101, end: 20050225
  3. SYNTHROID [Concomitant]
  4. ELAVIL [Concomitant]

REACTIONS (7)
  - ATTENTION DEFICIT/HYPERACTIVITY DISORDER [None]
  - CONDITION AGGRAVATED [None]
  - DRUG EFFECT DECREASED [None]
  - DYSPNOEA [None]
  - FATIGUE [None]
  - PAIN [None]
  - PULMONARY HYPERTENSION [None]
